FAERS Safety Report 8190581-7 (Version None)
Quarter: 2012Q1

REPORT INFORMATION
  Report Type: 
  Country: None (occurrence: None)
  Receive Date: 20120305
  Receipt Date: 20120220
  Transmission Date: 20120608
  Serious: Yes (Hospitalization, Other)
  Sender: FDA-Public Use
  Company Number: 2012P1007219

PATIENT
  Age: 8 Year
  Sex: Male

DRUGS (1)
  1. CEFTRIAXONE [Suspect]
     Indication: TYPHOID FEVER
     Dosage: 1000 MG; QD; IV
     Route: 042

REACTIONS (6)
  - TOXIC ENCEPHALOPATHY [None]
  - MYOCLONUS [None]
  - DEHYDRATION [None]
  - MENTAL STATUS CHANGES [None]
  - APATHY [None]
  - SOMNOLENCE [None]
